FAERS Safety Report 8124737-6 (Version None)
Quarter: 2012Q1

REPORT INFORMATION
  Report Type: 
  Country: None (occurrence: None)
  Receive Date: 20120209
  Receipt Date: 20120203
  Transmission Date: 20120608
  Serious: Yes (Hospitalization, Other)
  Sender: FDA-Public Use
  Company Number: US-PFIZER INC-2011118821

PATIENT
  Sex: Male

DRUGS (3)
  1. CHANTIX [Suspect]
     Indication: SMOKING CESSATION THERAPY
     Dosage: UNK
     Dates: start: 20080103, end: 20080110
  2. ACETAMINOPHEN AND HYDROCODONE BITARTRATE [Concomitant]
     Indication: ANALGESIC THERAPY
     Dosage: UNK
     Dates: start: 20080103, end: 20080101
  3. METHYLPREDNISOLONE [Concomitant]
     Indication: INFLAMMATION
     Dosage: UNK
     Dates: start: 20080103, end: 20080101

REACTIONS (6)
  - DEPRESSION [None]
  - AGGRESSION [None]
  - LOSS OF CONSCIOUSNESS [None]
  - CONVULSION [None]
  - ABNORMAL DREAMS [None]
  - ANXIETY [None]
